FAERS Safety Report 10469252 (Version 1)
Quarter: 2014Q3

REPORT INFORMATION
  Report Type: Spontaneous
  Country: US (occurrence: None)
  Receive Date: 20140903
  Receipt Date: 20140903
  Transmission Date: 20150326
  Serious: Yes (Hospitalization)
  Sender: FDA-Public Use
  Company Number: 2013-002438

PATIENT
  Age: 82 Year
  Sex: Female

DRUGS (8)
  1. INDERAL [Concomitant]
     Active Substance: PROPRANOLOL HYDROCHLORIDE
  2. DELZICOL [Suspect]
     Active Substance: MESALAMINE
     Indication: COLITIS
     Dosage: 1200 MG IN AM AND 800 MG IN PM
     Route: 048
     Dates: start: 2013
  3. ASACOL [Suspect]
     Active Substance: MESALAMINE
     Indication: COLITIS ULCERATIVE
     Route: 048
     Dates: end: 201304
  4. ASACOL [Suspect]
     Active Substance: MESALAMINE
     Indication: COLITIS
     Route: 048
     Dates: end: 201304
  5. DELZICOL [Suspect]
     Active Substance: MESALAMINE
     Indication: COLITIS ULCERATIVE
     Dosage: 1200 MG IN AM AND 800 MG IN PM
     Route: 048
     Dates: start: 2013
  6. QUINIDINE [Concomitant]
     Active Substance: QUINIDINE
  7. ATIVAN [Concomitant]
     Active Substance: LORAZEPAM
  8. RYTHMOL (PROPAFENONE) [Concomitant]

REACTIONS (4)
  - Colitis [None]
  - Foreign body [None]
  - Abdominal pain [None]
  - Product quality issue [None]

NARRATIVE: CASE EVENT DATE: 201304
